FAERS Safety Report 9404748 (Version 7)
Quarter: 2015Q2

REPORT INFORMATION
  Report Type: Spontaneous
  Country: US (occurrence: US)
  Receive Date: 20130717
  Receipt Date: 20150420
  Transmission Date: 20150821
  Serious: Yes (Hospitalization, Disabling, Other)
  Sender: FDA-Public Use
  Company Number: US-PFIZER INC-2013206047

PATIENT
  Age: 58 Year
  Sex: Female

DRUGS (14)
  1. RAPAMUNE [Suspect]
     Active Substance: SIROLIMUS
     Indication: IMMUNOSUPPRESSION
     Dosage: UNK
     Route: 048
     Dates: start: 200509, end: 20060210
  2. PREDNISONE. [Suspect]
     Active Substance: PREDNISONE
     Dosage: UNK
     Dates: end: 201112
  3. RAPAMUNE [Suspect]
     Active Substance: SIROLIMUS
     Dosage: 2 MG, 1X/DAY
     Route: 048
     Dates: start: 20051116
  4. RAPAMUNE [Suspect]
     Active Substance: SIROLIMUS
     Dosage: UNK
     Route: 048
     Dates: start: 200511
  5. PREDNISONE. [Suspect]
     Active Substance: PREDNISONE
     Dosage: 60 MG, 1X/DAY
     Dates: start: 20110527, end: 20110609
  6. PREDNISONE. [Suspect]
     Active Substance: PREDNISONE
     Dosage: 80 MG, 1X/DAY
     Dates: start: 20110617
  7. PREDNISONE. [Suspect]
     Active Substance: PREDNISONE
     Dosage: 40 MG, 1X/DAY
     Dates: start: 20110605, end: 20110618
  8. TYLENOL [Concomitant]
     Active Substance: ACETAMINOPHEN
     Dosage: UNK
  9. RAPAMUNE [Suspect]
     Active Substance: SIROLIMUS
     Dosage: 1 MG, 1X/DAY
     Route: 048
     Dates: start: 20051203
  10. PREDNISONE. [Suspect]
     Active Substance: PREDNISONE
     Dosage: 5 MG, UNK
     Dates: start: 20110801
  11. PREDNISONE. [Suspect]
     Active Substance: PREDNISONE
     Dosage: 10 MG, 2X/DAY
     Dates: start: 20060124, end: 20060214
  12. PREDNISONE. [Suspect]
     Active Substance: PREDNISONE
     Indication: ORGANISING PNEUMONIA
     Dosage: 2.5 MG, 1X/DAY
     Dates: start: 20050426
  13. PREDNISONE. [Suspect]
     Active Substance: PREDNISONE
     Dosage: 20 MG, UNK
     Dates: start: 20110310
  14. CODEINE [Concomitant]
     Active Substance: CODEINE
     Dosage: UNK

REACTIONS (6)
  - Sleep disorder [Unknown]
  - Spinal compression fracture [Unknown]
  - Organising pneumonia [Unknown]
  - Pneumonitis [Unknown]
  - Osteoporosis [Unknown]
  - Oedema [Unknown]

NARRATIVE: CASE EVENT DATE: 2005
